FAERS Safety Report 6913685-2 (Version None)
Quarter: 2010Q3

REPORT INFORMATION
  Report Type: 
  Country: None (occurrence: None)
  Receive Date: 20100809
  Receipt Date: 20100729
  Transmission Date: 20110219
  Serious: Yes (Hospitalization, Disabling, Other)
  Sender: FDA-Public Use
  Company Number: US-JNJFOC-20100605654

PATIENT
  Sex: Female
  Weight: 111.13 kg

DRUGS (4)
  1. NUCYNTA [Suspect]
     Indication: LIMB INJURY
     Route: 048
  2. PROMETHAZINE [Suspect]
     Indication: NAUSEA
     Route: 030
  3. HYDROCODONE [Concomitant]
     Indication: LIMB INJURY
     Route: 065
  4. CEREBREX [Concomitant]
     Indication: LIMB INJURY
     Route: 065

REACTIONS (9)
  - BURNING SENSATION [None]
  - DIZZINESS [None]
  - HAEMATEMESIS [None]
  - HALLUCINATION, AUDITORY [None]
  - HEADACHE [None]
  - NAUSEA [None]
  - OEDEMA PERIPHERAL [None]
  - PALPITATIONS [None]
  - PHOTOPHOBIA [None]
